FAERS Safety Report 7022315-3 (Version None)
Quarter: 2010Q3

REPORT INFORMATION
  Report Type: 
  Country: None (occurrence: None)
  Receive Date: 20100930
  Receipt Date: 20100923
  Transmission Date: 20110219
  Serious: Yes (Other)
  Sender: FDA-Public Use
  Company Number: US-JNJFOC-20100808066

PATIENT
  Sex: Female
  Weight: 81.65 kg

DRUGS (4)
  1. SANDOZ FENTANYL TRANSDERMAL SYSTEM [Suspect]
     Indication: MULTIPLE MYELOMA
     Route: 062
  2. FENTANYL-100 [Suspect]
     Indication: MULTIPLE MYELOMA
     Route: 062
  3. ZOMETA [Concomitant]
     Indication: NEOPLASM MALIGNANT
     Route: 042
  4. OXYCONTIN [Concomitant]
     Indication: PAIN
     Dosage: AS NEEDED
     Route: 048

REACTIONS (4)
  - ASTHENIA [None]
  - INCORRECT DRUG ADMINISTRATION DURATION [None]
  - PRODUCT PACKAGING ISSUE [None]
  - RECURRENT CANCER [None]
